FAERS Safety Report 17040109 (Version 1)
Quarter: 2019Q4

REPORT INFORMATION
  Report Type: Spontaneous
  Country: US (occurrence: US)
  Receive Date: 20191116
  Receipt Date: 20191116
  Transmission Date: 20200122
  Serious: No
  Sender: FDA-Public Use
  Company Number: US-TORRENT-00007786

PATIENT
  Sex: Female

DRUGS (1)
  1. LOSARTAN. [Suspect]
     Active Substance: LOSARTAN
     Indication: PRODUCT USED FOR UNKNOWN INDICATION
     Dosage: LOSARTAN POTASSIUM 50 MG TABLETS TWICE A DAY

REACTIONS (5)
  - Malaise [Unknown]
  - Burning sensation [Unknown]
  - Feeling abnormal [Unknown]
  - Tongue discomfort [Unknown]
  - Headache [Unknown]
